FAERS Safety Report 7784344-1 (Version None)
Quarter: 2011Q3

REPORT INFORMATION
  Report Type: 
  Country: None (occurrence: None)
  Receive Date: 20110928
  Receipt Date: 20110919
  Transmission Date: 20111222
  Serious: Yes (Hospitalization)
  Sender: FDA-Public Use
  Company Number: PHHY2011US40887

PATIENT
  Sex: Female
  Weight: 67.13 kg

DRUGS (3)
  1. EXJADE [Suspect]
     Indication: IRON OVERLOAD
     Dosage: 1250 MG, DAILY
     Route: 048
     Dates: start: 20110512
  2. EXJADE [Suspect]
     Indication: BREAST CANCER
  3. EXJADE [Suspect]
     Indication: DEFICIENCY ANAEMIA
     Dosage: 750 MG, QD
     Route: 048

REACTIONS (6)
  - VOMITING [None]
  - ABDOMINAL PAIN UPPER [None]
  - NAUSEA [None]
  - DEHYDRATION [None]
  - DIARRHOEA [None]
  - HEPATIC ENZYME INCREASED [None]
